FAERS Safety Report 7464923-1 (Version None)
Quarter: 2011Q2

REPORT INFORMATION
  Report Type: 
  Country: None (occurrence: None)
  Receive Date: 20110505
  Receipt Date: 20110505
  Transmission Date: 20111010
  Serious: No
  Sender: FDA-Public Use
  Company Number: None

PATIENT
  Age: 52 Year
  Sex: Female

DRUGS (1)
  1. HYDROXYCHLOROQUINE SULFATE [Suspect]
     Dates: start: 20101231, end: 20110214

REACTIONS (3)
  - CARDIOVASCULAR DISORDER [None]
  - CARDIOMYOPATHY [None]
  - DYSPNOEA [None]
